FAERS Safety Report 18693074 (Version 1)
Quarter: 2021Q1

REPORT INFORMATION
  Report Type: Spontaneous
  Country: US (occurrence: US)
  Receive Date: 20210104
  Receipt Date: 20210104
  Transmission Date: 20210419
  Serious: No
  Sender: FDA-Public Use
  Company Number: US-ASTRAZENECA-2020SF67160

PATIENT
  Age: 21489 Day
  Sex: Female
  Weight: 49.4 kg

DRUGS (4)
  1. SYMBICORT [Suspect]
     Active Substance: BUDESONIDE\FORMOTEROL FUMARATE DIHYDRATE
     Indication: ASTHMA
     Dosage: EVERY NIGHT
     Route: 055
  2. ALBUTEROL. [Concomitant]
     Active Substance: ALBUTEROL
  3. OMEGA 3 FISH OIL [Concomitant]
     Active Substance: FISH OIL\OMEGA-3 FATTY ACIDS
  4. SYMBICORT [Suspect]
     Active Substance: BUDESONIDE\FORMOTEROL FUMARATE DIHYDRATE
     Indication: ASTHMA
     Dosage: 160/4.5MCG, TWO PUFFS IN THE MORNING AND TWO PUFFS AT NIGHT
     Route: 055

REACTIONS (6)
  - Product use issue [Unknown]
  - Product dose omission issue [Recovered/Resolved]
  - Skin atrophy [Unknown]
  - Asthma [Unknown]
  - Cough [Unknown]
  - Inflammation [Unknown]

NARRATIVE: CASE EVENT DATE: 202005
